FAERS Safety Report 23916435 (Version 1)
Quarter: 2024Q2

REPORT INFORMATION
  Report Type: Spontaneous
  Country: FR (occurrence: FR)
  Receive Date: 20240529
  Receipt Date: 20240529
  Transmission Date: 20240716
  Serious: Yes (Hospitalization, Other)
  Sender: FDA-Public Use
  Company Number: FR-BAXTER-2024BAX017031

PATIENT
  Age: 4 Day
  Sex: Male

DRUGS (3)
  1. SODIUM CHLORIDE [Suspect]
     Active Substance: SODIUM CHLORIDE
     Indication: Blood sodium decreased
     Dosage: 0.2 MILLILITERES PER HOUR
     Route: 042
     Dates: start: 20240125, end: 20240126
  2. WATER FOR INJECTION [Suspect]
     Active Substance: WATER
     Indication: Medication dilution
     Dosage: 106 ML TO DILUTE 406 ML BAG OF NUMETAH G13%E PREMATURE (ADMINISTERED VIA PERIPHERAL VENOUS ROUTE)
     Route: 042
     Dates: start: 20240125, end: 20240126
  3. AMINO ACIDS\DEXTROSE\ELECTROLYTES NOS\SOYBEAN OIL [Suspect]
     Active Substance: AMINO ACIDS\DEXTROSE\ELECTROLYTES NOS\SOYBEAN OIL
     Indication: Parenteral nutrition
     Dosage: 4.4 ML/H (NUMETAH G13 PERCENT E PREMATURES WITH DILUTED LIPIDS) DILUTED IN 106 ML STERILE WATER FOR
     Route: 042
     Dates: start: 20240125, end: 20240126

REACTIONS (16)
  - Bradycardia [Recovered/Resolved]
  - Seizure [Recovered/Resolved with Sequelae]
  - Arrhythmia [Recovered/Resolved]
  - Cardiogenic shock [Recovered/Resolved]
  - Apnoea [Recovered/Resolved]
  - Oedema [Recovered/Resolved]
  - Intraventricular haemorrhage neonatal [Not Recovered/Not Resolved]
  - Hydrocephalus [Not Recovered/Not Resolved]
  - Status epilepticus [Unknown]
  - Electrolyte imbalance [Unknown]
  - Overdose [Unknown]
  - Nephropathy [Unknown]
  - Nervous system disorder [Unknown]
  - Hyperglycaemia [Unknown]
  - Device related infection [Unknown]
  - Device defective [Unknown]

NARRATIVE: CASE EVENT DATE: 20240126
